FAERS Safety Report 4851042-3 (Version None)
Quarter: 2005Q4

REPORT INFORMATION
  Report Type: 
  Country: None (occurrence: None)
  Receive Date: 20051130
  Receipt Date: 20051006
  Transmission Date: 20060501
  Serious: No
  Sender: FDA-Public Use
  Company Number: FABR-11267

PATIENT
  Age: 41 Year
  Sex: Female
  Weight: 83.9154 kg

DRUGS (4)
  1. FABRAZYME [Suspect]
     Indication: FABRY'S DISEASE
     Dosage: 84 MG Q2WKS IV
     Route: 042
     Dates: start: 20051005
  2. TYLENOL [Concomitant]
  3. BENADRYL [Concomitant]
  4. DECADRON [Concomitant]

REACTIONS (2)
  - STOMACH DISCOMFORT [None]
  - VOMITING [None]
